FAERS Safety Report 23803129 (Version 1)
Quarter: 2024Q2

REPORT INFORMATION
  Report Type: Spontaneous
  Country: US (occurrence: None)
  Receive Date: 20240430
  Receipt Date: 20240430
  Transmission Date: 20240716
  Serious: Yes (Other)
  Sender: FDA-Public Use
  Company Number: None

PATIENT
  Age: 70 Year
  Sex: Female
  Weight: 54.9 kg

DRUGS (3)
  1. DUPIXENT [Suspect]
     Active Substance: DUPILUMAB
     Indication: Dermatitis atopic
     Dosage: OTHER FREQUENCY : EVERY OTHER WEEK;
     Route: 058
     Dates: start: 20240206, end: 20240319
  2. SYNTHROID [Concomitant]
     Active Substance: LEVOTHYROXINE SODIUM
  3. MULTIVITAMI.D3 [Concomitant]

REACTIONS (5)
  - Erythema of eyelid [None]
  - Blepharitis [None]
  - Hordeolum [None]
  - Chalazion [None]
  - Skin fissures [None]

NARRATIVE: CASE EVENT DATE: 20240302
